FAERS Safety Report 7164576-6 (Version None)
Quarter: 2010Q4

REPORT INFORMATION
  Report Type: 
  Country: None (occurrence: None)
  Receive Date: 20101215
  Receipt Date: 20101130
  Transmission Date: 20110411
  Serious: Yes (Other)
  Sender: FDA-Public Use
  Company Number: US-BAUSCH-2010BL006788

PATIENT
  Age: 12 Year
  Sex: Male

DRUGS (1)
  1. LOTEMAX [Suspect]
     Indication: EYE INFLAMMATION
     Route: 047
     Dates: start: 20101124, end: 20101126

REACTIONS (1)
  - VIITH NERVE PARALYSIS [None]
